FAERS Safety Report 5904104-3 (Version None)
Quarter: 2008Q3

REPORT INFORMATION
  Report Type: 
  Country: None (occurrence: None)
  Receive Date: 20080919
  Receipt Date: 20080710
  Transmission Date: 20090109
  Serious: No
  Sender: FDA-Public Use
  Company Number: US-WYE-H05052308

PATIENT
  Age: 52 Year
  Sex: Female
  Weight: 111.23 kg

DRUGS (13)
  1. PRISTIQ [Suspect]
     Indication: DEPRESSION
     Dosage: 50 MG 1X PER 1 DAY, ORAL
     Route: 048
     Dates: start: 20080601
  2. LOVAZA [Concomitant]
  3. AMBIEN [Concomitant]
  4. PLAVIX [Concomitant]
  5. ATARAX [Concomitant]
  6. MOTRIN [Concomitant]
  7. ATIVAN [Concomitant]
  8. DILTIAZEM [Concomitant]
  9. PRILOSEC [Concomitant]
  10. LIPITOR [Concomitant]
  11. SYNTHROID [Concomitant]
  12. MYCARDOL (PENTAERITHRITYL TETRANITRATE) [Concomitant]
  13. REMERON [Concomitant]

REACTIONS (1)
  - DRUG INEFFECTIVE [None]
